FAERS Safety Report 5691359-6 (Version None)
Quarter: 2008Q2

REPORT INFORMATION
  Report Type: 
  Country: None (occurrence: None)
  Receive Date: 20080402
  Receipt Date: 20080325
  Transmission Date: 20081010
  Serious: Yes (Death, Hospitalization)
  Sender: FDA-Public Use
  Company Number: CH-BAYER-200814720GPV

PATIENT
  Age: 78 Year
  Sex: Male

DRUGS (1)
  1. ULTRAVIST 370 / IOPROMIDUM [Suspect]
     Indication: ANGIOGRAM
     Route: 042
     Dates: start: 20080130

REACTIONS (5)
  - CIRCULATORY COLLAPSE [None]
  - CONVULSION [None]
  - DYSPNOEA [None]
  - LOSS OF CONSCIOUSNESS [None]
  - MYOCARDIAL INFARCTION [None]
